FAERS Safety Report 5062067-X (Version None)
Quarter: 2006Q3

REPORT INFORMATION
  Report Type: 
  Country: None (occurrence: None)
  Receive Date: 20060726
  Receipt Date: 20050117
  Transmission Date: 20061208
  Serious: Yes (Other)
  Sender: FDA-Public Use
  Company Number: CH-ROCHE-392688

PATIENT
  Age: 32 Year
  Sex: Female

DRUGS (2)
  1. ROACCUTAN [Suspect]
     Indication: ACNE
     Dosage: 10 MG TAKEN ON 27 SEP 2004, 29 SEP 2004 AND 26 OCT 2004.
     Route: 048
     Dates: start: 20040927, end: 20041026
  2. ROACCUTAN [Suspect]
     Route: 048
     Dates: start: 20041026, end: 20041026

REACTIONS (3)
  - ABORTION INDUCED [None]
  - NO ADVERSE EFFECT [None]
  - PREGNANCY [None]
